FAERS Safety Report 11105108 (Version 3)
Quarter: 2015Q3

REPORT INFORMATION
  Report Type: Spontaneous
  Country: US (occurrence: US)
  Receive Date: 20150511
  Receipt Date: 20150721
  Transmission Date: 20151125
  Serious: Yes (Hospitalization, Other)
  Sender: FDA-Public Use
  Company Number: US-GLAXOSMITHKLINE-US2015061957

PATIENT
  Sex: Female

DRUGS (7)
  1. ADVAIR DISKUS [Suspect]
     Active Substance: FLUTICASONE PROPIONATE\SALMETEROL XINAFOATE
     Indication: CHRONIC OBSTRUCTIVE PULMONARY DISEASE
     Dosage: 1 PUFF(S), BID
     Route: 055
     Dates: start: 2005
  2. METHOTREXATE [Concomitant]
     Active Substance: METHOTREXATE
  3. ENBREL [Concomitant]
     Active Substance: ETANERCEPT
  4. PANTOPRAZOLE [Concomitant]
     Active Substance: PANTOPRAZOLE SODIUM
  5. FOLIC ACID. [Concomitant]
     Active Substance: FOLIC ACID
  6. PREDNISONE. [Concomitant]
     Active Substance: PREDNISONE
  7. SPIRIVA [Concomitant]
     Active Substance: TIOTROPIUM BROMIDE MONOHYDRATE

REACTIONS (3)
  - Hernia [Recovering/Resolving]
  - Hospitalisation [Unknown]
  - Abscess [Recovering/Resolving]
